FAERS Safety Report 24934188 (Version 1)
Quarter: 2025Q1

REPORT INFORMATION
  Report Type: Report from Study
  Country: US (occurrence: US)
  Receive Date: 20250206
  Receipt Date: 20250206
  Transmission Date: 20250408
  Serious: No
  Sender: EXELIXIS
  Company Number: US-EXELIXIS-EXL-2024-002587

PATIENT
  Sex: Female

DRUGS (1)
  1. CABOMETYX [Suspect]
     Active Substance: CABOZANTINIB S-MALATE
     Indication: Thyroid cancer
     Dosage: 40 MG, QD
     Route: 048

REACTIONS (7)
  - Fear of falling [Unknown]
  - Fatigue [Unknown]
  - Dry skin [Unknown]
  - Diarrhoea [Unknown]
  - Asthenia [Unknown]
  - Dry mouth [Unknown]
  - Product prescribing error [Unknown]
